FAERS Safety Report 17337028 (Version 3)
Quarter: 2020Q1

REPORT INFORMATION
  Report Type: Spontaneous
  Country: US (occurrence: US)
  Receive Date: 20200128
  Receipt Date: 20200221
  Transmission Date: 20200409
  Serious: No
  Sender: FDA-Public Use
  Company Number: US-PFIZER INC-2020036806

PATIENT
  Age: 94 Year
  Sex: Male
  Weight: 78.2 kg

DRUGS (2)
  1. ADVIL [Suspect]
     Active Substance: IBUPROFEN
     Indication: PAIN
     Dosage: UNK  1X/DAY (AT NIGHT BEFORE BED)
  2. ADVIL [Suspect]
     Active Substance: IBUPROFEN
     Indication: ANALGESIC THERAPY
     Dosage: 200 MG, AS NEEDED (200 MG; 1 TABLET BY MOUTH AS NEEDED)
     Route: 048
     Dates: start: 20200122

REACTIONS (3)
  - Abdominal pain upper [Not Recovered/Not Resolved]
  - Therapeutic product effect decreased [Unknown]
  - Constipation [Not Recovered/Not Resolved]

NARRATIVE: CASE EVENT DATE: 202001
